FAERS Safety Report 5311485-0 (Version None)
Quarter: 2007Q1

REPORT INFORMATION
  Report Type: 
  Country: None (occurrence: None)
  Receive Date: 20070201
  Receipt Date: 20061207
  Transmission Date: 20070707
  Serious: No
  Sender: FDA-Public Use
  Company Number: 259257

PATIENT
  Age: 73 Year
  Sex: Female
  Weight: 70.7 kg

DRUGS (6)
  1. LEVEMIR [Suspect]
     Indication: INSULIN-REQUIRING TYPE II DIABETES MELLITUS
     Dosage: 25 IU, QD SUBCUTANEOUS
     Route: 058
     Dates: start: 20060901
  2. GLUCOPHAGE [Concomitant]
  3. GLUCOTROL [Concomitant]
  4. ZOCOR [Concomitant]
  5. SYNTHROID [Concomitant]
  6. ALTACE [Concomitant]

REACTIONS (1)
  - WEIGHT DECREASED [None]
